FAERS Safety Report 12127198 (Version 1)
Quarter: 2016Q1

REPORT INFORMATION
  Report Type: Report from Study
  Country: BR (occurrence: BR)
  Receive Date: 20160229
  Receipt Date: 20160229
  Transmission Date: 20160526
  Serious: Yes (Other)
  Sender: FDA-Public Use
  Company Number: PHHY2016BR026029

PATIENT
  Age: 73 Year
  Sex: Male

DRUGS (1)
  1. DIOVAN HCT [Suspect]
     Active Substance: HYDROCHLOROTHIAZIDE\VALSARTAN
     Indication: PRODUCT USED FOR UNKNOWN INDICATION
     Dosage: 320 MG OF VALSARTAN AND 12.5 MG HYDROCHLOROTHIAZIDE
     Route: 048

REACTIONS (2)
  - Heart rate decreased [Unknown]
  - Device malfunction [Unknown]
